FAERS Safety Report 6290097-9 (Version None)
Quarter: 2009Q3

REPORT INFORMATION
  Report Type: 
  Country: None (occurrence: None)
  Receive Date: 20090730
  Receipt Date: 20081119
  Transmission Date: 20100115
  Serious: No
  Sender: FDA-Public Use
  Company Number: US-BRISTOL-MYERS SQUIBB COMPANY-14412092

PATIENT
  Age: 80 Year
  Sex: Male
  Weight: 51 kg

DRUGS (2)
  1. COUMADIN [Suspect]
     Dosage: INTERRUPTED FOR 3 OR 4DAYS AND RESTARTED(DATE UNK).
     Dates: start: 19961015
  2. LEVOTHYROXINE SODIUM [Concomitant]

REACTIONS (1)
  - BLOOD URINE PRESENT [None]
